FAERS Safety Report 15497918 (Version 1)
Quarter: 2018Q4

REPORT INFORMATION
  Report Type: Spontaneous
  Country: US (occurrence: US)
  Receive Date: 20181015
  Receipt Date: 20181015
  Transmission Date: 20190205
  Serious: No
  Sender: FDA-Public Use
  Company Number: US-PFIZER INC-2018410749

PATIENT
  Age: 62 Year
  Sex: Male

DRUGS (2)
  1. CAVERJECT [Suspect]
     Active Substance: ALPROSTADIL
     Indication: ERECTILE DYSFUNCTION
     Dosage: 10 UG, UNK
  2. CAVERJECT [Suspect]
     Active Substance: ALPROSTADIL
     Dosage: 20 UG, UNK

REACTIONS (2)
  - Drug effect incomplete [Unknown]
  - Drug titration error [Unknown]
